FAERS Safety Report 18014273 (Version 1)
Quarter: 2020Q3

REPORT INFORMATION
  Report Type: Spontaneous
  Country: US (occurrence: US)
  Receive Date: 20200713
  Receipt Date: 20200713
  Transmission Date: 20201103
  Serious: No
  Sender: FDA-Public Use
  Company Number: None

PATIENT
  Age: 59 Year
  Sex: Male
  Weight: 119.3 kg

DRUGS (4)
  1. REMDESIVIR. [Suspect]
     Active Substance: REMDESIVIR
     Indication: COVID-19
     Dates: start: 20200710
  2. DEXAMETHASONE 6MG DAILY [Concomitant]
     Dates: start: 20200711
  3. ALBUTEROL INHALER [Concomitant]
     Active Substance: ALBUTEROL
     Dates: start: 20200711
  4. ASPIRIN 81 MG DAILY [Concomitant]
     Dates: start: 20200710

REACTIONS (3)
  - Extra dose administered [None]
  - Liver function test increased [None]
  - Product dispensing error [None]

NARRATIVE: CASE EVENT DATE: 20200710
